FAERS Safety Report 4677839-0 (Version None)
Quarter: 2005Q2

REPORT INFORMATION
  Report Type: 
  Country: None (occurrence: None)
  Receive Date: 20050531
  Receipt Date: 20050519
  Transmission Date: 20051028
  Serious: Yes (Hospitalization)
  Sender: FDA-Public Use
  Company Number: DE-AMGEN-UK134643

PATIENT
  Sex: Male
  Weight: 86 kg

DRUGS (3)
  1. NEULASTA [Suspect]
     Indication: CHEMOTHERAPY
     Route: 058
     Dates: start: 20050310, end: 20050310
  2. CARBOPLATIN [Concomitant]
     Route: 042
     Dates: start: 20050307, end: 20050307
  3. ETOPOSIDE [Concomitant]
     Route: 042
     Dates: start: 20050309, end: 20050309

REACTIONS (1)
  - HAEMORRHOIDS [None]
